FAERS Safety Report 4417827-2 (Version None)
Quarter: 2004Q2

REPORT INFORMATION
  Report Type: 
  Country: None (occurrence: None)
  Receive Date: 20040624
  Receipt Date: 20030715
  Transmission Date: 20050107
  Serious: Yes (Life-Threatening)
  Sender: FDA-Public Use
  Company Number: 2003AP02490

PATIENT
  Age: 9 Year
  Sex: Male
  Weight: 29 kg

DRUGS (4)
  1. BUPIVACAINE [Suspect]
     Indication: ANAESTHESIA
     Dosage: 3 ML ED
     Route: 005
  2. MIDAZOLAM HCL [Concomitant]
  3. SEVOFLURANE [Concomitant]
  4. VECURONIUM BROMIDE [Concomitant]

REACTIONS (1)
  - CARDIAC ARREST [None]
